FAERS Safety Report 4600210-4 (Version None)
Quarter: 2005Q1

REPORT INFORMATION
  Report Type: 
  Country: None (occurrence: None)
  Receive Date: 20050307
  Receipt Date: 19990723
  Transmission Date: 20050727
  Serious: Yes (Other)
  Sender: FDA-Public Use
  Company Number: 99D--10638

PATIENT
  Age: 42 Year
  Sex: Male

DRUGS (1)
  1. BENAZEPRIL HCL [Suspect]
     Indication: ESSENTIAL HYPERTENSION
     Dosage: 10,QD
     Route: 048
     Dates: start: 19981101, end: 19990701

REACTIONS (9)
  - COUGH [None]
  - DYSPHONIA [None]
  - HYPERPLASIA [None]
  - LARYNGEAL INJURY [None]
  - LARYNGEAL OEDEMA [None]
  - LARYNGITIS [None]
  - VOCAL CORD DISORDER [None]
  - VOCAL CORD INFLAMMATION [None]
  - VOCAL CORD THICKENING [None]
